FAERS Safety Report 24979973 (Version 1)
Quarter: 2025Q1

REPORT INFORMATION
  Report Type: Spontaneous
  Country: US (occurrence: US)
  Receive Date: 20250218
  Receipt Date: 20250218
  Transmission Date: 20250409
  Serious: No
  Sender: JOHNSON AND JOHNSON
  Company Number: US-JNJFOC-20250190512

PATIENT
  Age: 13 Year
  Sex: Male
  Weight: 60.33 kg

DRUGS (1)
  1. REMICADE [Suspect]
     Active Substance: INFLIXIMAB
     Indication: Product used for unknown indication
     Route: 041

REACTIONS (5)
  - Mental disorder [Unknown]
  - Headache [Unknown]
  - Influenza like illness [Unknown]
  - Fatigue [Unknown]
  - Arthralgia [Unknown]
